FAERS Safety Report 8152320-5 (Version None)
Quarter: 2012Q1

REPORT INFORMATION
  Report Type: 
  Country: None (occurrence: None)
  Receive Date: 20120221
  Receipt Date: 20120213
  Transmission Date: 20120608
  Serious: Yes (Hospitalization)
  Sender: FDA-Public Use
  Company Number: US-BAYER-2011-045495

PATIENT
  Age: 26 Year
  Sex: Female
  Weight: 94.331 kg

DRUGS (7)
  1. YAZ [Suspect]
     Indication: CONTRACEPTION
     Dosage: UNK
     Route: 048
     Dates: start: 20070426, end: 20090909
  2. MOTRIN [Concomitant]
     Dosage: UNK
     Dates: start: 20090501
  3. LISINOPRIL [Concomitant]
     Dosage: UNK
     Dates: start: 20090401, end: 20090701
  4. LORATADINE [Concomitant]
     Dosage: UNK
     Dates: start: 20090430
  5. CLARITIN [Concomitant]
     Dosage: UNK
     Dates: start: 20090430
  6. TORADOL [Concomitant]
     Dosage: UNK
     Dates: start: 20090501
  7. PRINIVIL [Concomitant]
     Dosage: UNK
     Dates: start: 20090430

REACTIONS (2)
  - CHOLECYSTITIS CHRONIC [None]
  - GALLBLADDER DISORDER [None]
